FAERS Safety Report 7272141-5 (Version None)
Quarter: 2010Q4

REPORT INFORMATION
  Report Type: 
  Country: None (occurrence: None)
  Receive Date: 20101208
  Receipt Date: 20091214
  Transmission Date: 20110411
  Serious: Yes (Other)
  Sender: FDA-Public Use
  Company Number: RB-02992-2010

PATIENT
  Sex: Female

DRUGS (2)
  1. DELSYM [Suspect]
     Dosage: (TOOK A SWIG ORAL)
     Route: 048
     Dates: start: 20091214
  2. MUCINEX [Suspect]
     Dosage: (TOOK 1 TABLET)
     Dates: start: 20091214

REACTIONS (2)
  - EUPHORIC MOOD [None]
  - OVERDOSE [None]
